FAERS Safety Report 16387293 (Version 1)
Quarter: 2019Q2

REPORT INFORMATION
  Report Type: Spontaneous
  Country: GB (occurrence: GB)
  Receive Date: 20190604
  Receipt Date: 20190604
  Transmission Date: 20190711
  Serious: Yes (Hospitalization)
  Sender: FDA-Public Use
  Company Number: GB-TEVA-2019-GB-1057113

PATIENT
  Age: 50 Year
  Sex: Female

DRUGS (14)
  1. CLOPIDOGREL [Concomitant]
     Active Substance: CLOPIDOGREL BISULFATE
  2. BISOPROLOL [Concomitant]
     Active Substance: BISOPROLOL
  3. ATORVASTATIN [Concomitant]
     Active Substance: ATORVASTATIN
  4. RAMIPRIL. [Concomitant]
     Active Substance: RAMIPRIL
  5. OMEPRAZOLE. [Concomitant]
     Active Substance: OMEPRAZOLE
  6. NOVORAPID [Concomitant]
     Active Substance: INSULIN ASPART
  7. BUMETANIDE. [Suspect]
     Active Substance: BUMETANIDE
     Indication: LEFT VENTRICULAR DYSFUNCTION
     Dosage: 3MG ONCE DAILY IN THE MORNING AND 2MG ONCE DAILY AT LUNCHTIME
     Route: 048
     Dates: start: 20190312, end: 20190420
  8. BENDROFLUMETHIAZIDE [Concomitant]
     Active Substance: BENDROFLUMETHIAZIDE
  9. APIXABAN [Concomitant]
     Active Substance: APIXABAN
  10. ABASAGLAR [Concomitant]
     Active Substance: INSULIN GLARGINE
  11. AMITRIPTYLINE [Concomitant]
     Active Substance: AMITRIPTYLINE
  12. FERROUS FUMARATE [Concomitant]
     Active Substance: FERROUS FUMARATE
  13. EPLERENONE. [Concomitant]
     Active Substance: EPLERENONE
  14. ZOMORPH [Concomitant]
     Active Substance: MORPHINE SULFATE

REACTIONS (1)
  - Acute kidney injury [Recovered/Resolved]

NARRATIVE: CASE EVENT DATE: 20190419
